FAERS Safety Report 6300055-3 (Version None)
Quarter: 2009Q3

REPORT INFORMATION
  Report Type: 
  Country: None (occurrence: None)
  Receive Date: 20090803
  Receipt Date: 20090720
  Transmission Date: 20100115
  Serious: Yes (Other)
  Sender: FDA-Public Use
  Company Number: ADR10702009

PATIENT
  Age: 66 Year
  Sex: Male

DRUGS (10)
  1. AMLODIPINE [Suspect]
  2. METFORMIN [Suspect]
  3. PAROXETINE HYDROCHLOROTHIAZIDE [Concomitant]
  4. TEMAZEPAM [Concomitant]
  5. ASPIRIN [Concomitant]
  6. CANDESARTAN CILEXETIL [Concomitant]
  7. HUMALOG [Concomitant]
  8. NIZATIDINE [Concomitant]
  9. TRAZODONE HCL [Concomitant]
  10. VALIUM [Concomitant]

REACTIONS (1)
  - DIABETES MELLITUS INADEQUATE CONTROL [None]
